FAERS Safety Report 6104819-0 (Version None)
Quarter: 2009Q1

REPORT INFORMATION
  Report Type: 
  Country: None (occurrence: None)
  Receive Date: 20090306
  Receipt Date: 20090303
  Transmission Date: 20090719
  Serious: Yes (Other)
  Sender: FDA-Public Use
  Company Number: CN-JNJFOC-20090301021

PATIENT
  Sex: Male

DRUGS (2)
  1. SPORANOX [Suspect]
     Indication: FUNGAL INFECTION
     Route: 041
     Dates: start: 20090106, end: 20090115
  2. SPORANOX [Suspect]
     Dosage: 40 ML STRENGTH
     Route: 048

REACTIONS (1)
  - OSTEOPOROSIS [None]
